FAERS Safety Report 7110910-2 (Version None)
Quarter: 2010Q4

REPORT INFORMATION
  Report Type: 
  Country: None (occurrence: None)
  Receive Date: 20101112
  Receipt Date: 20101027
  Transmission Date: 20110411
  Serious: Yes (Hospitalization, Disabling)
  Sender: FDA-Public Use
  Company Number: 1-17293765

PATIENT
  Age: 58 Year
  Sex: Male
  Weight: 83.9154 kg

DRUGS (10)
  1. QUININE SULFATE [Suspect]
     Indication: MUSCLE SPASMS
     Dosage: 324MG AS NEEDED, ORAL
     Route: 048
     Dates: start: 20040314
  2. DIOVAN [Concomitant]
  3. DIOVAN HCT [Concomitant]
  4. ASPIRIN [Concomitant]
  5. PROPOXYPHENE NAPSYLATE [Concomitant]
  6. ACETAMINOPHEN [Concomitant]
  7. TOPROL-XL [Concomitant]
  8. LIPITOR [Concomitant]
  9. TUMS [Concomitant]
  10. CO-Q10 [Concomitant]

REACTIONS (33)
  - ANXIETY [None]
  - AUTOIMMUNE THROMBOCYTOPENIA [None]
  - BLOOD BLISTER [None]
  - BODY TEMPERATURE INCREASED [None]
  - CHEST PAIN [None]
  - CHILLS [None]
  - CHOLELITHIASIS [None]
  - CONTUSION [None]
  - COUGH [None]
  - DIZZINESS [None]
  - DRUG HYPERSENSITIVITY [None]
  - ECCHYMOSIS [None]
  - EMOTIONAL DISTRESS [None]
  - EPISTAXIS [None]
  - FEAR [None]
  - GRIEF REACTION [None]
  - HAEMOPTYSIS [None]
  - HEADACHE [None]
  - IDIOPATHIC THROMBOCYTOPENIC PURPURA [None]
  - LYMPHOCYTOSIS [None]
  - LYMPHOMA [None]
  - MOVEMENT DISORDER [None]
  - MUSCULOSKELETAL PAIN [None]
  - MYELODYSPLASTIC SYNDROME [None]
  - NERVOUSNESS [None]
  - OROPHARYNGEAL BLISTERING [None]
  - PAIN [None]
  - PETECHIAE [None]
  - PNEUMONIA [None]
  - PULMONARY EMBOLISM [None]
  - PURPURA [None]
  - SYNCOPE [None]
  - THROMBOCYTOPENIA [None]
